FAERS Safety Report 5601946-9 (Version None)
Quarter: 2008Q1

REPORT INFORMATION
  Report Type: 
  Country: None (occurrence: None)
  Receive Date: 20080122
  Receipt Date: 20080107
  Transmission Date: 20080703
  Serious: Yes (Death, Hospitalization)
  Sender: FDA-Public Use
  Company Number: DEP_00127_2008

PATIENT
  Age: 69 Year
  Sex: Female

DRUGS (11)
  1. METFORMIN HCL [Suspect]
     Indication: DRUG USE FOR UNKNOWN INDICATION
     Dosage: (DF ORAL)
  2. SERTRALINE [Concomitant]
  3. NIFEDIPINE [Concomitant]
  4. GLIPIZIDE [Concomitant]
  5. GLYBURIDE [Concomitant]
  6. MECLIZINE [Concomitant]
  7. BACLOFEN [Concomitant]
  8. CLONIDINE [Concomitant]
  9. METOPROLOL TARTRATE [Concomitant]
  10. ENALAPRIL [Concomitant]
  11. PRAVASTATIN [Concomitant]

REACTIONS (17)
  - BLOOD CHLORIDE INCREASED [None]
  - BLOOD POTASSIUM INCREASED [None]
  - BLOOD PRESSURE SYSTOLIC INCREASED [None]
  - BLOOD SODIUM DECREASED [None]
  - BRAIN OEDEMA [None]
  - CEREBRAL INFARCTION [None]
  - CONFUSIONAL STATE [None]
  - DRUG TOXICITY [None]
  - HAEMODIALYSIS [None]
  - HEART RATE INCREASED [None]
  - HEMIPARESIS [None]
  - HYPOGLYCAEMIA [None]
  - HYPOTENSION [None]
  - LACTIC ACIDOSIS [None]
  - POISONING [None]
  - RENAL FAILURE [None]
  - SEPSIS [None]
